FAERS Safety Report 7886710-2 (Version None)
Quarter: 2011Q4

REPORT INFORMATION
  Report Type: 
  Country: None (occurrence: None)
  Receive Date: 20111102
  Receipt Date: 20110711
  Transmission Date: 20120403
  Serious: No
  Sender: FDA-Public Use
  Company Number: US-AMGEN-USASP2011035177

PATIENT
  Sex: Female

DRUGS (8)
  1. HYZAAR [Concomitant]
  2. PREMARIN [Concomitant]
     Dosage: 0.3 MG, UNK
  3. ENBREL [Suspect]
     Indication: PRODUCT USED FOR UNKNOWN INDICATION
     Dosage: 50 MG, QWK
     Route: 058
  4. NORTRIPTYLINE HYDROCHLORIDE [Concomitant]
     Dosage: 25 MG, UNK
  5. ASPIRIN [Concomitant]
     Dosage: 81 MG, UNK
  6. SULFASALAZINE [Concomitant]
  7. LORAZEPAM [Concomitant]
     Dosage: 0.5 MG, UNK
  8. LORTAB [Concomitant]
     Dosage: UNK

REACTIONS (2)
  - PALPITATIONS [None]
  - BLOOD POTASSIUM DECREASED [None]
